FAERS Safety Report 13637904 (Version 4)
Quarter: 2018Q1

REPORT INFORMATION
  Report Type: Report from Study
  Country: AU (occurrence: AU)
  Receive Date: 20170609
  Receipt Date: 20180103
  Transmission Date: 20180508
  Serious: Yes (Other)
  Sender: FDA-Public Use
  Company Number: AU-REGENERON PHARMACEUTICALS, INC.-2017-16870

PATIENT

DRUGS (1)
  1. EYLEA [Suspect]
     Active Substance: AFLIBERCEPT
     Indication: NEOVASCULAR AGE-RELATED MACULAR DEGENERATION
     Dosage: UNK
     Route: 031
     Dates: start: 20170331

REACTIONS (8)
  - Depressed mood [Not Recovered/Not Resolved]
  - Intra-ocular injection [Unknown]
  - Foreign body sensation in eyes [Unknown]
  - Ocular hyperaemia [Unknown]
  - Blindness transient [Recovered/Resolved]
  - Eye pain [Unknown]
  - Intra-ocular injection [Recovered/Resolved]
  - Vision blurred [Recovering/Resolving]

NARRATIVE: CASE EVENT DATE: 201711
